FAERS Safety Report 7645194-X (Version None)
Quarter: 2011Q3

REPORT INFORMATION
  Report Type: 
  Country: None (occurrence: None)
  Receive Date: 20110729
  Receipt Date: 20110726
  Transmission Date: 20111222
  Serious: Yes (Other)
  Sender: FDA-Public Use
  Company Number: US-SANOFI-AVENTIS-2011SA047892

PATIENT
  Age: 56 Year
  Sex: Female

DRUGS (2)
  1. PLAVIX [Suspect]
     Route: 048
     Dates: start: 20110501, end: 20110701
  2. IMMUNOSUPPRESSIVE AGENTS [Concomitant]

REACTIONS (13)
  - GASTRIC ULCER [None]
  - ABDOMINAL PAIN UPPER [None]
  - HAEMORRHAGE [None]
  - CONTUSION [None]
  - APHONIA [None]
  - WEIGHT DECREASED [None]
  - CONVULSION [None]
  - SWOLLEN TONGUE [None]
  - BURNING SENSATION [None]
  - SALIVARY HYPERSECRETION [None]
  - CHROMATURIA [None]
  - HYPERSENSITIVITY [None]
  - DEHYDRATION [None]
